FAERS Safety Report 6851595-X (Version None)
Quarter: 2010Q3

REPORT INFORMATION
  Report Type: 
  Country: None (occurrence: None)
  Receive Date: 20100717
  Receipt Date: 20080508
  Transmission Date: 20110219
  Serious: No
  Sender: FDA-Public Use
  Company Number: US-PFIZER INC-2008006127

PATIENT
  Sex: Male
  Weight: 68.181 kg

DRUGS (4)
  1. CHANTIX [Suspect]
     Indication: SMOKING CESSATION THERAPY
     Dates: start: 20080106, end: 20080115
  2. VICODIN [Concomitant]
     Indication: MUSCULOSKELETAL DISCOMFORT
  3. CORTISONE [Concomitant]
     Indication: MUSCULOSKELETAL DISCOMFORT
     Route: 030
  4. NABUMETONE [Concomitant]
     Indication: MUSCULOSKELETAL DISCOMFORT

REACTIONS (7)
  - DEPRESSION [None]
  - EMOTIONAL DISORDER [None]
  - FEELING ABNORMAL [None]
  - INSOMNIA [None]
  - MIDDLE INSOMNIA [None]
  - NAUSEA [None]
  - VOMITING [None]
